FAERS Safety Report 21063605 (Version 1)
Quarter: 2022Q3

REPORT INFORMATION
  Report Type: Spontaneous
  Country: CA (occurrence: None)
  Receive Date: 20220711
  Receipt Date: 20220711
  Transmission Date: 20221027
  Serious: Yes (Other)
  Sender: FDA-Public Use
  Company Number: CA-AMGEN-CANSP2018101357

PATIENT
  Age: 51 Year
  Sex: Female
  Weight: 73 kg

DRUGS (58)
  1. METHOTREXATE [Suspect]
     Active Substance: METHOTREXATE
     Indication: Rheumatoid arthritis
     Route: 048
  2. METHOTREXATE [Suspect]
     Active Substance: METHOTREXATE
     Route: 048
  3. METHOTREXATE [Suspect]
     Active Substance: METHOTREXATE
     Route: 048
  4. METHOTREXATE [Suspect]
     Active Substance: METHOTREXATE
     Route: 048
  5. METHOTREXATE [Suspect]
     Active Substance: METHOTREXATE
     Route: 058
  6. METHOTREXATE [Suspect]
     Active Substance: METHOTREXATE
     Route: 058
  7. ENBREL [Suspect]
     Active Substance: ETANERCEPT
     Indication: Rheumatoid arthritis
     Route: 058
  8. ENBREL [Suspect]
     Active Substance: ETANERCEPT
     Route: 058
  9. INFLIXIMAB [Suspect]
     Active Substance: INFLIXIMAB
     Indication: Rheumatoid arthritis
     Route: 042
  10. SULFASALAZINE [Suspect]
     Active Substance: SULFASALAZINE
     Indication: Rheumatoid arthritis
     Route: 065
  11. SULFASALAZINE [Suspect]
     Active Substance: SULFASALAZINE
     Route: 065
  12. METHYLPREDNISOLONE [Suspect]
     Active Substance: METHYLPREDNISOLONE
     Indication: Product used for unknown indication
     Route: 065
  13. ACTEMRA [Suspect]
     Active Substance: TOCILIZUMAB
     Indication: Rheumatoid arthritis
     Dosage: 2X/WEEKS
     Route: 058
  14. ACTEMRA [Suspect]
     Active Substance: TOCILIZUMAB
     Dosage: 2X/WEEK
     Route: 058
  15. ACTEMRA [Suspect]
     Active Substance: TOCILIZUMAB
     Dosage: Q2WK
     Route: 058
  16. ACTEMRA [Suspect]
     Active Substance: TOCILIZUMAB
     Dosage: 2X/WEEK
     Route: 058
  17. ACTEMRA [Suspect]
     Active Substance: TOCILIZUMAB
     Route: 058
  18. ADALIMUMAB [Suspect]
     Active Substance: ADALIMUMAB
     Indication: Product used for unknown indication
     Dosage: Q2WK
     Route: 058
  19. ADALIMUMAB [Suspect]
     Active Substance: ADALIMUMAB
     Dosage: Q2WK
     Route: 058
  20. ADALIMUMAB [Suspect]
     Active Substance: ADALIMUMAB
     Dosage: Q2WK
     Route: 058
  21. ADALIMUMAB [Suspect]
     Active Substance: ADALIMUMAB
     Route: 058
  22. HYDROXYCHLOROQUINE SULFATE [Suspect]
     Active Substance: HYDROXYCHLOROQUINE SULFATE
     Indication: Product used for unknown indication
     Dosage: 3 TIMES/WK
     Route: 065
  23. HYDROXYCHLOROQUINE SULFATE [Suspect]
     Active Substance: HYDROXYCHLOROQUINE SULFATE
     Dosage: Q2WK
     Route: 065
  24. HYDROXYCHLOROQUINE SULFATE [Suspect]
     Active Substance: HYDROXYCHLOROQUINE SULFATE
     Dosage: EVERY 3 WEEKS
     Route: 065
  25. HYDROXYCHLOROQUINE SULFATE [Suspect]
     Active Substance: HYDROXYCHLOROQUINE SULFATE
     Dosage: Q2WK
     Route: 065
  26. HYDROXYCHLOROQUINE SULFATE [Suspect]
     Active Substance: HYDROXYCHLOROQUINE SULFATE
     Route: 065
  27. HYDROXYCHLOROQUINE SULFATE [Suspect]
     Active Substance: HYDROXYCHLOROQUINE SULFATE
     Route: 065
  28. LEFLUNOMIDE [Suspect]
     Active Substance: LEFLUNOMIDE
     Indication: Product used for unknown indication
     Route: 065
  29. ORENCIA [Suspect]
     Active Substance: ABATACEPT
     Indication: Rheumatoid arthritis
     Route: 065
  30. ORENCIA [Suspect]
     Active Substance: ABATACEPT
     Dosage: CYCLIC (1 EVERY 1MONTH)
     Route: 065
  31. ORENCIA [Suspect]
     Active Substance: ABATACEPT
     Route: 058
  32. HYDROXYCHLOROQUINE [Suspect]
     Active Substance: HYDROXYCHLOROQUINE
     Indication: Product used for unknown indication
     Route: 065
  33. HYDROXYCHLOROQUINE [Suspect]
     Active Substance: HYDROXYCHLOROQUINE
     Dosage: 2 TIMES/WK
     Route: 065
  34. HYDROXYCHLOROQUINE [Suspect]
     Active Substance: HYDROXYCHLOROQUINE
     Dosage: THREE IN ONE WEEK
     Route: 065
  35. HYDROXYCHLOROQUINE [Suspect]
     Active Substance: HYDROXYCHLOROQUINE
     Route: 065
  36. LEFLUNOMIDE [Suspect]
     Active Substance: LEFLUNOMIDE
     Indication: Rheumatoid arthritis
     Route: 065
  37. LEFLUNOMIDE [Suspect]
     Active Substance: LEFLUNOMIDE
     Route: 065
  38. LEFLUNOMIDE [Suspect]
     Active Substance: LEFLUNOMIDE
     Route: 065
  39. CERTOLIZUMAB PEGOL [Suspect]
     Active Substance: CERTOLIZUMAB PEGOL
     Indication: Product used for unknown indication
     Route: 058
  40. CYCLOSPORINE [Suspect]
     Active Substance: CYCLOSPORINE
     Indication: Rheumatoid arthritis
     Route: 065
  41. CIMZIA [Suspect]
     Active Substance: CERTOLIZUMAB PEGOL
     Indication: Rheumatoid arthritis
     Route: 065
  42. HUMIRA [Suspect]
     Active Substance: ADALIMUMAB
     Indication: Rheumatoid arthritis
     Route: 058
  43. NEORAL [Suspect]
     Active Substance: CYCLOSPORINE
     Indication: Product used for unknown indication
     Route: 048
  44. NEORAL [Suspect]
     Active Substance: CYCLOSPORINE
     Route: 058
  45. PLAQUENIL [Suspect]
     Active Substance: HYDROXYCHLOROQUINE SULFATE
     Indication: Rheumatoid arthritis
     Route: 048
  46. REMICADE [Suspect]
     Active Substance: INFLIXIMAB
     Indication: Product used for unknown indication
     Route: 042
  47. RITUXIMAB [Suspect]
     Active Substance: RITUXIMAB
     Indication: Rheumatoid arthritis
     Route: 048
  48. RITUXIMAB [Suspect]
     Active Substance: RITUXIMAB
     Route: 065
  49. ARAVA [Concomitant]
     Active Substance: LEFLUNOMIDE
     Indication: Rheumatoid arthritis
     Route: 048
  50. ARAVA [Concomitant]
     Active Substance: LEFLUNOMIDE
     Route: 048
  51. RISEDRONATE SODIUM [Concomitant]
     Active Substance: RISEDRONATE SODIUM
  52. FOLIC ACID [Concomitant]
     Active Substance: FOLIC ACID
     Route: 048
  53. NAPROXEN [Concomitant]
     Active Substance: NAPROXEN
     Route: 065
  54. PREDNISONE [Concomitant]
     Active Substance: PREDNISONE
     Route: 065
  55. XELJANZ [Concomitant]
     Active Substance: TOFACITINIB CITRATE
     Indication: Rheumatoid arthritis
     Route: 048
  56. XELJANZ [Concomitant]
     Active Substance: TOFACITINIB CITRATE
     Route: 048
  57. XELJANZ [Concomitant]
     Active Substance: TOFACITINIB CITRATE
     Route: 048
  58. TOFACITINIB [Concomitant]
     Active Substance: TOFACITINIB
     Indication: Rheumatoid arthritis
     Route: 048

REACTIONS (21)
  - Drug ineffective [Not Recovered/Not Resolved]
  - Therapeutic product effect decreased [Not Recovered/Not Resolved]
  - Therapeutic product effect incomplete [Not Recovered/Not Resolved]
  - Contraindicated product administered [Not Recovered/Not Resolved]
  - Treatment failure [Not Recovered/Not Resolved]
  - Off label use [Not Recovered/Not Resolved]
  - Rheumatoid arthritis [Not Recovered/Not Resolved]
  - Hepatitis [Not Recovered/Not Resolved]
  - Arthralgia [Not Recovered/Not Resolved]
  - Inflammation [Not Recovered/Not Resolved]
  - Joint swelling [Not Recovered/Not Resolved]
  - Musculoskeletal stiffness [Not Recovered/Not Resolved]
  - Gait inability [Not Recovered/Not Resolved]
  - Anti-cyclic citrullinated peptide antibody positive [Not Recovered/Not Resolved]
  - Hypersensitivity [Not Recovered/Not Resolved]
  - Synovitis [Not Recovered/Not Resolved]
  - Drug intolerance [Not Recovered/Not Resolved]
  - Neck pain [Not Recovered/Not Resolved]
  - Pain [Not Recovered/Not Resolved]
  - Pain in extremity [Not Recovered/Not Resolved]
  - Interstitial lung disease [Not Recovered/Not Resolved]
